FAERS Safety Report 16433809 (Version 2)
Quarter: 2025Q4

REPORT INFORMATION
  Report Type: Spontaneous
  Country: US (occurrence: US)
  Receive Date: 20190614
  Receipt Date: 20251024
  Transmission Date: 20260117
  Serious: No
  Sender: JOHNSON AND JOHNSON
  Company Number: US-JNJFOC-20150805318

PATIENT
  Age: 1 Decade
  Sex: Male

DRUGS (7)
  1. RISPERDAL [Suspect]
     Active Substance: RISPERIDONE
     Indication: Product used for unknown indication
     Route: 048
  2. RISPERDAL M-TAB [Suspect]
     Active Substance: RISPERIDONE
     Indication: Attention deficit hyperactivity disorder
     Route: 048
     Dates: start: 20070321, end: 20070905
  3. RISPERDAL M-TAB [Suspect]
     Active Substance: RISPERIDONE
     Indication: Bipolar disorder
     Route: 048
     Dates: start: 20070913
  4. RISPERDAL M-TAB [Suspect]
     Active Substance: RISPERIDONE
     Indication: Autism spectrum disorder
     Route: 048
     Dates: start: 20071109
  5. RISPERDAL M-TAB [Suspect]
     Active Substance: RISPERIDONE
     Indication: Affective disorder
     Route: 048
     Dates: start: 20080103, end: 20080512
  6. RISPERDAL M-TAB [Suspect]
     Active Substance: RISPERIDONE
     Indication: Behaviour disorder
     Route: 048
     Dates: start: 20090121, end: 20091204
  7. RISPERDAL M-TAB [Suspect]
     Active Substance: RISPERIDONE
     Indication: Autism spectrum disorder

REACTIONS (2)
  - Gynaecomastia [Unknown]
  - Weight increased [Unknown]

NARRATIVE: CASE EVENT DATE: 20090101
